FAERS Safety Report 9528892 (Version 1)
Quarter: 2013Q3

REPORT INFORMATION
  Report Type: Spontaneous
  Country: US (occurrence: US)
  Receive Date: 20130917
  Receipt Date: 20130917
  Transmission Date: 20140515
  Serious: No
  Sender: FDA-Public Use
  Company Number: US-BANPHARM-20130923

PATIENT
  Age: 91 Year
  Sex: Male
  Weight: 58.06 kg

DRUGS (3)
  1. ZYRTEC LIQUID GELS 10 MG [Suspect]
     Indication: HYPERSENSITIVITY
     Dosage: 1 DF, QD,
     Route: 048
     Dates: start: 2013, end: 2013
  2. WARFARIN [Concomitant]
  3. GLAUCOMA MEDICINE [Concomitant]
     Indication: GLAUCOMA

REACTIONS (2)
  - Somnolence [Recovered/Resolved]
  - Drug ineffective [Unknown]
